FAERS Safety Report 16544322 (Version 1)
Quarter: 2019Q3

REPORT INFORMATION
  Report Type: Spontaneous
  Country: US (occurrence: US)
  Receive Date: 20190708
  Receipt Date: 20190708
  Transmission Date: 20191004
  Serious: No
  Sender: FDA-Public Use
  Company Number: None

PATIENT
  Age: 50 Year
  Sex: Female

DRUGS (1)
  1. EQUATE EYE ALLERGY RELIEF DROPS [Suspect]
     Active Substance: NAPHAZOLINE HYDROCHLORIDE\PHENIRAMINE MALEATE
     Indication: EYE ALLERGY
     Dosage: ?          QUANTITY:2 DROP(S);?
     Route: 047
     Dates: start: 20190701, end: 20190703

REACTIONS (6)
  - Instillation site erythema [None]
  - Eye swelling [None]
  - Eye discharge [None]
  - Vision blurred [None]
  - Instillation site pain [None]
  - Instillation site pruritus [None]

NARRATIVE: CASE EVENT DATE: 20190701
